FAERS Safety Report 4700549-8 (Version None)
Quarter: 2005Q2

REPORT INFORMATION
  Report Type: 
  Country: None (occurrence: None)
  Receive Date: 20050627
  Receipt Date: 20050627
  Transmission Date: 20051028
  Serious: Yes (Other)
  Sender: FDA-Public Use
  Company Number: None

PATIENT
  Age: 34 Year
  Sex: Female
  Weight: 62.5964 kg

DRUGS (4)
  1. FLUOXETINE [Suspect]
     Indication: OBSESSIVE-COMPULSIVE DISORDER
     Dosage: 20 MG   QD   ORAL
     Route: 048
     Dates: start: 19970401, end: 20050131
  2. FLUOXETINE [Suspect]
     Indication: POSTPARTUM DEPRESSION
     Dosage: 20 MG   QD   ORAL
     Route: 048
     Dates: start: 19970401, end: 20050131
  3. LEVOXYL [Concomitant]
  4. MICROGESTIN FE 1/20 [Concomitant]

REACTIONS (2)
  - FATIGUE [None]
  - HYPERSOMNIA [None]
